FAERS Safety Report 20470424 (Version 1)
Quarter: 2022Q1

REPORT INFORMATION
  Report Type: Spontaneous
  Country: US (occurrence: None)
  Receive Date: 20220212
  Receipt Date: 20220212
  Transmission Date: 20220423
  Serious: Yes (Hospitalization)
  Sender: FDA-Public Use
  Company Number: None

PATIENT
  Age: 43 Year
  Sex: Male
  Weight: 146.3 kg

DRUGS (5)
  1. CARBOPLATIN [Suspect]
     Active Substance: CARBOPLATIN
     Dates: start: 20191213, end: 20200117
  2. ETOPOSIDE [Suspect]
     Active Substance: ETOPOSIDE
     Dates: start: 20191213, end: 20200117
  3. FILGRASTIM [Suspect]
     Active Substance: FILGRASTIM
     Dates: start: 20191213, end: 20191224
  4. IFOSFAMIDE [Suspect]
     Active Substance: IFOSFAMIDE
     Dates: start: 20191213, end: 20200102
  5. PACLITAXEL [Suspect]
     Active Substance: PACLITAXEL
     Dates: start: 20191213, end: 20191231

REACTIONS (3)
  - Febrile neutropenia [None]
  - White blood cell count decreased [None]
  - Platelet count decreased [None]

NARRATIVE: CASE EVENT DATE: 20200125
